FAERS Safety Report 9555019 (Version 1)
Quarter: 2013Q3

REPORT INFORMATION
  Report Type: Spontaneous
  Country: US (occurrence: None)
  Receive Date: 20130913
  Receipt Date: 20130913
  Transmission Date: 20140515
  Serious: Yes (Hospitalization)
  Sender: FDA-Public Use
  Company Number: E2B_00000602

PATIENT
  Age: 66 Year
  Sex: Female
  Weight: 56.25 kg

DRUGS (8)
  1. MELOXICAM [Suspect]
     Indication: ARTHRITIS
     Dosage: 15 MG (15 MG, 1 IN 1 D), PER ORAL
     Route: 048
     Dates: start: 20121004, end: 20121025
  2. MELOXICAM [Suspect]
     Indication: PAIN
     Dosage: 15 MG (15 MG, 1 IN 1 D), PER ORAL
     Route: 048
     Dates: start: 20121004, end: 20121025
  3. ACETYLSALICYLIC ACID [Suspect]
     Indication: PRODUCT USED FOR UNKNOWN INDICATION
  4. METOPROLOL (TABLETS) [Concomitant]
  5. METFORMIN (TABLETS) [Concomitant]
  6. LISINOPRIL (TABLETS) (LISINOPRIL) [Concomitant]
  7. TICLOPIDINE (TABLETS) [Concomitant]
  8. PRAVASTATIN (TABLETS) [Concomitant]

REACTIONS (4)
  - Gastric ulcer haemorrhage [None]
  - Dyspnoea [None]
  - Dizziness [None]
  - Haemoglobin decreased [None]
